FAERS Safety Report 4487346-6 (Version None)
Quarter: 2004Q4

REPORT INFORMATION
  Report Type: 
  Country: None (occurrence: None)
  Receive Date: 20041022
  Receipt Date: 20041006
  Transmission Date: 20050328
  Serious: Yes (Death, Hospitalization)
  Sender: FDA-Public Use
  Company Number: 2004IC000868

PATIENT
  Age: 53 Year
  Sex: Female

DRUGS (4)
  1. FLUOROURACIL [Suspect]
     Indication: COLON CANCER
     Dosage: 750 MG, INTRAVENOUS
     Route: 042
     Dates: start: 20040720, end: 20040803
  2. CALCIUM LEVOFOLINATE (CALCIUM LEVOFOLINATE) [Suspect]
     Indication: COLON CANCER
     Dosage: 350 MG, INTRAVENOUS
     Route: 042
     Dates: start: 20040720, end: 20040803
  3. FURTULON [Concomitant]
  4. UFT [Concomitant]

REACTIONS (6)
  - ABDOMINAL PAIN [None]
  - BONE MARROW DEPRESSION [None]
  - DIARRHOEA [None]
  - LEUKOPENIA [None]
  - MULTI-ORGAN FAILURE [None]
  - STOMATITIS [None]
